FAERS Safety Report 5859947-1 (Version None)
Quarter: 2008Q3

REPORT INFORMATION
  Report Type: 
  Country: None (occurrence: None)
  Receive Date: 20080827
  Receipt Date: 20080808
  Transmission Date: 20090109
  Serious: Yes (Hospitalization)
  Sender: FDA-Public Use
  Company Number: JP-JNJFOC-20080802086

PATIENT
  Age: 73 Year

DRUGS (2)
  1. RISPERDAL [Suspect]
     Indication: DELIRIUM
     Route: 048
  2. BUFFERIN [Concomitant]
     Route: 048

REACTIONS (3)
  - HAEMORRHAGE SUBCUTANEOUS [None]
  - RED BLOOD CELL COUNT DECREASED [None]
  - WHITE BLOOD CELL COUNT INCREASED [None]
